FAERS Safety Report 11374693 (Version 1)
Quarter: 2015Q3

REPORT INFORMATION
  Report Type: Spontaneous
  Country: US (occurrence: None)
  Receive Date: 20150812
  Receipt Date: 20150812
  Transmission Date: 20151125
  Serious: Yes (Life-Threatening, Hospitalization, Disabling)
  Sender: FDA-Public Use
  Company Number: None

PATIENT
  Age: 65 Year
  Sex: Female
  Weight: 61.24 kg

DRUGS (2)
  1. DEPOKAT [Concomitant]
  2. HEPARIN [Suspect]
     Active Substance: HEPARIN SODIUM

REACTIONS (6)
  - Drug hypersensitivity [None]
  - Foot amputation [None]
  - Gangrene [None]
  - Thrombosis [None]
  - Leg amputation [None]
  - Toe amputation [None]

NARRATIVE: CASE EVENT DATE: 20150715
